FAERS Safety Report 20404846 (Version 1)
Quarter: 2022Q1

REPORT INFORMATION
  Report Type: Report from Study
  Country: PK (occurrence: PK)
  Receive Date: 20220131
  Receipt Date: 20220131
  Transmission Date: 20220424
  Serious: Yes (Other)
  Sender: FDA-Public Use
  Company Number: PK-NOVARTISPH-NVSC2022PK016653

PATIENT
  Age: 54 Year
  Sex: Female
  Weight: 50 kg

DRUGS (2)
  1. GLIVEC [Suspect]
     Active Substance: IMATINIB MESYLATE
     Indication: Philadelphia positive chronic myeloid leukaemia
     Dosage: 600 MG, QD (3 TABS BD)
     Route: 048
     Dates: start: 20190724
  2. GLIVEC [Suspect]
     Active Substance: IMATINIB MESYLATE
     Dosage: 400 MG, QD (2 TABS)
     Route: 048
     Dates: start: 20220124

REACTIONS (2)
  - Renal disorder [Not Recovered/Not Resolved]
  - Renal function test abnormal [Unknown]

NARRATIVE: CASE EVENT DATE: 20220124
